FAERS Safety Report 9466783 (Version 1)
Quarter: 2013Q3

REPORT INFORMATION
  Report Type: Not Available
  Country: DE (occurrence: DE)
  Receive Date: 20130820
  Receipt Date: 20130820
  Transmission Date: 20140515
  Serious: Yes (Hospitalization, Other)
  Sender: FDA-Public Use
  Company Number: DE-PURDUE-DEU-2013-0012142

PATIENT
  Age: 2 Day
  Sex: Male
  Weight: 3.1 kg

DRUGS (7)
  1. PALLADON RETARD [Suspect]
     Indication: FOETAL EXPOSURE DURING PREGNANCY
     Dosage: 6.2 MG, DAILY
     Route: 064
  2. PALLADON RETARD [Suspect]
     Dosage: 12 MG, DAILY
     Route: 064
     Dates: start: 20070502
  3. PALLADON [Suspect]
     Indication: FOETAL EXPOSURE DURING PREGNANCY
     Dosage: 2.6 MG, BID
     Route: 064
     Dates: end: 20080127
  4. PALLADON 2,6MG HARTKAPSELN [Suspect]
     Dosage: 2.6 MG, DAILY
     Route: 064
     Dates: start: 200706
  5. NEURONTIN [Suspect]
     Indication: FOETAL EXPOSURE DURING PREGNANCY
     Dosage: 400 MG, BID
     Route: 064
     Dates: end: 20080127
  6. NEURONTIN [Suspect]
     Dosage: 1600 MG, DAILY
     Route: 064
  7. NEURONTIN [Suspect]
     Dosage: 800 MG, TID
     Route: 064
     Dates: start: 20070502

REACTIONS (3)
  - Bradycardia neonatal [Unknown]
  - Hyperbilirubinaemia neonatal [Recovered/Resolved]
  - Foetal exposure during pregnancy [Unknown]
